FAERS Safety Report 17671110 (Version 1)
Quarter: 2020Q3

REPORT INFORMATION
  Report Type: Spontaneous
  Country: FR (occurrence: FR)
  Receive Date: 20200415
  Receipt Date: 20200415
  Transmission Date: 20201104
  Serious: Yes (Hospitalization)
  Sender: FDA-Public Use
  Company Number: NVSC2020FR099967

PATIENT
  Age: 75 Year
  Sex: Male
  Weight: 63 kg

DRUGS (9)
  1. OXYNORMORO [Suspect]
     Active Substance: OXYCODONE HYDROCHLORIDE
     Indication: PAIN
     Dosage: 1 DF, ONCE/SINGLE
     Route: 048
     Dates: start: 20191217, end: 20191217
  2. ATRACURIUM [Suspect]
     Active Substance: ATRACURIUM
     Indication: ANAESTHESIA
     Dosage: 45 MG, ONCE/SINGLE
     Route: 042
     Dates: start: 20191217, end: 20191217
  3. CLINDAMYCIN. [Suspect]
     Active Substance: CLINDAMYCIN
     Indication: ANTIBIOTIC PROPHYLAXIS
     Dosage: 900 MG, ONCE/SINGLE
     Route: 042
     Dates: start: 20191217, end: 20191217
  4. PROSTIGMINE [NEOSTIGMINE METILSULFATE] [Suspect]
     Active Substance: NEOSTIGMINE METHYLSULFATE
     Indication: ANAESTHESIA
     Dosage: 2.5 MG, ONCE/SINGLE
     Route: 042
     Dates: start: 20191217, end: 20191217
  5. GENTAMICINE [Suspect]
     Active Substance: GENTAMICIN
     Indication: ANTIBIOTIC PROPHYLAXIS
     Dosage: 320 MG, ONCE/SINGLE
     Route: 042
     Dates: start: 20191217, end: 20191217
  6. ATROPINE. [Suspect]
     Active Substance: ATROPINE
     Indication: ANAESTHESIA
     Dosage: 1 MG, ONCE/SINGLE
     Route: 042
     Dates: start: 20191217, end: 20191217
  7. KETAMINE [Suspect]
     Active Substance: KETAMINE
     Indication: ANAESTHESIA
     Dosage: 10 MG, ONCE/SINGLE
     Route: 042
     Dates: start: 20191217, end: 20191217
  8. PROPOFOL. [Suspect]
     Active Substance: PROPOFOL
     Indication: ANAESTHESIA
     Dosage: 120 MG, ONCE/SINGLE
     Route: 042
     Dates: start: 20191217, end: 20191217
  9. EPHEDRINE. [Suspect]
     Active Substance: EPHEDRINE
     Indication: ANAESTHESIA
     Dosage: 6 MG, ONCE/SINGLE
     Route: 042
     Dates: start: 20191217, end: 20191217

REACTIONS (2)
  - Rash maculo-papular [Recovered/Resolved]
  - Pruritus [Recovered/Resolved]

NARRATIVE: CASE EVENT DATE: 20191218
